FAERS Safety Report 5872211-X (Version None)
Quarter: 2008Q3

REPORT INFORMATION
  Report Type: 
  Country: None (occurrence: None)
  Receive Date: 20080905
  Receipt Date: 20080828
  Transmission Date: 20090109
  Serious: Yes (Death, Hospitalization)
  Sender: FDA-Public Use
  Company Number: GB-JNJFOC-20080901025

PATIENT
  Age: 48 Year
  Sex: Female

DRUGS (3)
  1. ACETAMINOPHEN W/ CODEINE [Suspect]
     Indication: INFLUENZA
     Route: 048
  2. ACETAMINOPHEN [Suspect]
     Route: 048
  3. ACETAMINOPHEN [Suspect]
     Indication: INFLUENZA
     Route: 048

REACTIONS (6)
  - ABDOMINAL RIGIDITY [None]
  - ACCIDENTAL OVERDOSE [None]
  - ACUTE HEPATIC FAILURE [None]
  - BRADYCARDIA [None]
  - METABOLIC ACIDOSIS [None]
  - RENAL FAILURE [None]
